FAERS Safety Report 4302477-9 (Version None)
Quarter: 2004Q1

REPORT INFORMATION
  Report Type: 
  Country: None (occurrence: None)
  Receive Date: 20040220
  Receipt Date: 20040122
  Transmission Date: 20041129
  Serious: No
  Sender: FDA-Public Use
  Company Number: 04P-163-0250121-00

PATIENT
  Age: 54 Year
  Sex: Male

DRUGS (4)
  1. KALETRA [Suspect]
     Indication: HIV INFECTION
     Dosage: SEE IMAGE
     Route: 048
     Dates: start: 20030201
  2. EFAVIRENZ [Suspect]
     Indication: HIV INFECTION
     Dosage: PER ORAL
     Route: 048
     Dates: start: 20030201, end: 20030301
  3. ABACAVIR [Suspect]
     Indication: HIV INFECTION
     Dosage: PER ORAL
     Route: 048
     Dates: start: 20030201, end: 20030201
  4. TENOFOVIR [Suspect]
     Indication: HIV INFECTION
     Dosage: PER ORAL
     Route: 048
     Dates: start: 20030201

REACTIONS (8)
  - ABNORMAL DREAMS [None]
  - ABSCESS [None]
  - DIARRHOEA [None]
  - HEADACHE [None]
  - MYALGIA [None]
  - PYREXIA [None]
  - RHINORRHOEA [None]
  - STAPHYLOCOCCAL INFECTION [None]
